FAERS Safety Report 18101115 (Version 2)
Quarter: 2020Q3

REPORT INFORMATION
  Report Type: Report from Study
  Country: None (occurrence: US)
  Receive Date: 20200801
  Receipt Date: 20200920
  Transmission Date: 20201103
  Serious: Yes (Other)
  Sender: FDA-Public Use
  Company Number: US-ABBVIE-20K-163-3505786-00

PATIENT
  Age: 80 Year
  Sex: Female
  Weight: 74.91 kg

DRUGS (1)
  1. SKYRIZI [Suspect]
     Active Substance: RISANKIZUMAB-RZAA
     Indication: PSORIASIS
     Dosage: 75MG/0.83ML
     Route: 058

REACTIONS (3)
  - Skin cancer [Recovered/Resolved]
  - Postoperative wound infection [Not Recovered/Not Resolved]
  - Skin cancer [Not Recovered/Not Resolved]

NARRATIVE: CASE EVENT DATE: 202003
